FAERS Safety Report 25773037 (Version 1)
Quarter: 2025Q3

REPORT INFORMATION
  Report Type: Other
  Country: CN (occurrence: CN)
  Receive Date: 20250908
  Receipt Date: 20250908
  Transmission Date: 20251020
  Serious: Yes (Death, Hospitalization)
  Sender: ANI
  Company Number: CN-ANIPHARMA-030456

PATIENT
  Age: 40 Year
  Sex: Male

DRUGS (35)
  1. CYCLOPHOSPHAMIDE [Suspect]
     Active Substance: CYCLOPHOSPHAMIDE
     Indication: T-cell type acute leukaemia
     Dates: start: 201810
  2. PEMETREXED [Concomitant]
     Active Substance: PEMETREXED
     Indication: Non-small cell lung cancer
     Dates: start: 2016
  3. CISPLATIN [Concomitant]
     Active Substance: CISPLATIN
     Indication: Non-small cell lung cancer
     Dates: start: 2016
  4. DEXAMETHASONE [Concomitant]
     Active Substance: DEXAMETHASONE
     Indication: T-cell type acute leukaemia
     Dates: start: 201810
  5. DOXORUBICIN [Concomitant]
     Active Substance: DOXORUBICIN
     Indication: T-cell type acute leukaemia
     Dates: start: 201810
  6. VINDESINE [Concomitant]
     Active Substance: VINDESINE
     Indication: T-cell type acute leukaemia
     Dates: start: 201810
  7. METHOTREXATE [Concomitant]
     Active Substance: METHOTREXATE
     Indication: T-cell type acute leukaemia
     Dates: start: 201811
  8. CYTARABINE [Concomitant]
     Active Substance: CYTARABINE
     Indication: T-cell type acute leukaemia
     Dates: start: 201811
  9. VENETOCLAX [Concomitant]
     Active Substance: VENETOCLAX
     Indication: T-cell type acute leukaemia
     Dates: start: 201811
  10. ACLARUBICIN [Concomitant]
     Active Substance: ACLARUBICIN
     Indication: T-cell type acute leukaemia
     Dates: start: 201811
  11. BUSULFAN [Concomitant]
     Active Substance: BUSULFAN
     Indication: Prophylaxis against graft versus host disease
     Dates: start: 201903
  12. SEMUSTINE [Concomitant]
     Active Substance: SEMUSTINE
     Indication: Prophylaxis against graft versus host disease
     Route: 048
     Dates: start: 201903
  13. THYMOCYTE IMMUNE GLOBULIN NOS [Concomitant]
     Active Substance: THYMOCYTE IMMUNE GLOBULIN NOS
     Indication: Prophylaxis against graft versus host disease
     Dates: start: 201903
  14. CYCLOSPORINE [Concomitant]
     Active Substance: CYCLOSPORINE
     Indication: Prophylaxis against graft versus host disease
     Dates: start: 201903
  15. GEFITINIB [Concomitant]
     Active Substance: GEFITINIB
     Indication: Non-small cell lung cancer
     Dates: start: 2019, end: 2020
  16. OSIMERTINIB [Concomitant]
     Active Substance: OSIMERTINIB
     Indication: Non-small cell lung cancer
     Dates: start: 2020
  17. CYCLOPHOSPHAMIDE [Suspect]
     Active Substance: CYCLOPHOSPHAMIDE
     Indication: Non-small cell lung cancer
     Dates: start: 201810
  18. VENETOCLAX [Concomitant]
     Active Substance: VENETOCLAX
     Indication: Non-small cell lung cancer
     Dates: start: 201811
  19. VENETOCLAX [Concomitant]
     Active Substance: VENETOCLAX
     Indication: T-cell type acute leukaemia
     Dates: start: 201901
  20. VENETOCLAX [Concomitant]
     Active Substance: VENETOCLAX
     Indication: Non-small cell lung cancer
     Dates: start: 201901
  21. ACLARUBICIN [Concomitant]
     Active Substance: ACLARUBICIN
     Indication: Non-small cell lung cancer
     Dates: start: 201811
  22. ACLARUBICIN [Concomitant]
     Active Substance: ACLARUBICIN
     Indication: T-cell type acute leukaemia
     Dates: start: 201901
  23. ACLARUBICIN [Concomitant]
     Active Substance: ACLARUBICIN
     Indication: Non-small cell lung cancer
     Dates: start: 201901
  24. CYTARABINE [Concomitant]
     Active Substance: CYTARABINE
     Indication: Non-small cell lung cancer
     Dates: start: 201811
  25. CYTARABINE [Concomitant]
     Active Substance: CYTARABINE
     Indication: T-cell type acute leukaemia
     Dates: start: 201811
  26. CYTARABINE [Concomitant]
     Active Substance: CYTARABINE
     Indication: Non-small cell lung cancer
     Dates: start: 201811
  27. CYTARABINE [Concomitant]
     Active Substance: CYTARABINE
     Indication: T-cell type acute leukaemia
     Dates: start: 201901
  28. CYTARABINE [Concomitant]
     Active Substance: CYTARABINE
     Indication: Non-small cell lung cancer
     Dates: start: 201901
  29. CYTARABINE [Concomitant]
     Active Substance: CYTARABINE
     Indication: Prophylaxis against graft versus host disease
     Dates: start: 201903
  30. METHOTREXATE [Concomitant]
     Active Substance: METHOTREXATE
     Indication: Non-small cell lung cancer
     Dates: start: 201811
  31. METHOTREXATE [Concomitant]
     Active Substance: METHOTREXATE
     Indication: Prophylaxis against graft versus host disease
  32. CYCLOPHOSPHAMIDE [Suspect]
     Active Substance: CYCLOPHOSPHAMIDE
     Indication: Prophylaxis against graft versus host disease
     Dates: start: 201903
  33. DEXAMETHASONE [Concomitant]
     Active Substance: DEXAMETHASONE
     Indication: Non-small cell lung cancer
     Dates: start: 201810
  34. DOXORUBICIN [Concomitant]
     Active Substance: DOXORUBICIN
     Indication: Non-small cell lung cancer
     Dates: start: 201810
  35. VINDESINE [Concomitant]
     Active Substance: VINDESINE
     Indication: Non-small cell lung cancer
     Dates: start: 201810

REACTIONS (1)
  - Drug ineffective [Fatal]
